FAERS Safety Report 9029887 (Version 2)
Quarter: 2013Q3

REPORT INFORMATION
  Report Type: Spontaneous
  Country: JP (occurrence: JP)
  Receive Date: 20130124
  Receipt Date: 20130826
  Transmission Date: 20140515
  Serious: Yes (Hospitalization)
  Sender: FDA-Public Use
  Company Number: JP-VERTEX PHARMACEUTICALS INC.-2013-001076

PATIENT
  Age: 66 Year
  Sex: Female

DRUGS (13)
  1. TELAVIC [Suspect]
     Indication: CHRONIC HEPATITIS C
     Dosage: 2250 MG, QD
     Route: 048
     Dates: start: 20130110, end: 20130111
  2. TELAVIC [Suspect]
     Dosage: 750 MG, UNK
     Route: 048
     Dates: start: 20130213, end: 20130404
  3. PEGINTRON [Concomitant]
     Dosage: 1.5 ?G/KG, QW
     Route: 058
     Dates: start: 20130110
  4. RIBAVIRIN [Concomitant]
     Dosage: 800 MG, QD
     Route: 048
     Dates: start: 20130110, end: 20130117
  5. RIBAVIRIN [Concomitant]
     Dosage: 600 MG, QD
     Route: 048
     Dates: start: 20130118, end: 20130206
  6. RIBAVIRIN [Concomitant]
     Dosage: 400 MG, QD
     Route: 048
     Dates: start: 20130207
  7. CALBLOCK [Concomitant]
     Dosage: 16 MG, QD
     Route: 048
  8. TRICOR [Concomitant]
     Dosage: 80 MG, QD
     Route: 048
  9. NEXIUM [Concomitant]
     Dosage: 20 MG, QD
     Route: 048
  10. THYRADIN S [Concomitant]
     Dosage: 20 MG, QD
     Route: 048
  11. BONALON [Concomitant]
     Dosage: 35 MG, QD
     Route: 048
  12. ALLELOCK [Concomitant]
     Dosage: 10 MG, QD
     Route: 048
  13. JUVELA N [Concomitant]
     Dosage: 300 MG, QD
     Route: 048

REACTIONS (1)
  - Rash [Recovered/Resolved]
